FAERS Safety Report 10082369 (Version 2)
Quarter: 2014Q2

REPORT INFORMATION
  Report Type: Spontaneous
  Country: US (occurrence: US)
  Receive Date: 20140416
  Receipt Date: 20140416
  Transmission Date: 20141212
  Serious: No
  Sender: FDA-Public Use
  Company Number: US-ORAPHARMA-QUINORA-2013-079

PATIENT
  Sex: 0

DRUGS (1)
  1. ARESTIN [Suspect]
     Indication: DENTAL IMPLANTATION
     Dosage: 1 UNK, ONE TIME DOSE
     Route: 050
     Dates: start: 201212, end: 201212

REACTIONS (2)
  - Off label use [Unknown]
  - Cellulitis [Recovered/Resolved]
